FAERS Safety Report 25370619 (Version 2)
Quarter: 2025Q3

REPORT INFORMATION
  Report Type: Spontaneous
  Country: US (occurrence: US)
  Receive Date: 20250528
  Receipt Date: 20250925
  Transmission Date: 20251020
  Serious: Yes (Other)
  Sender: BRISTOL-MYERS SQUIBB COMPANY
  Company Number: US-BRISTOL-MYERS SQUIBB COMPANY-2025-076821

PATIENT
  Age: 52 Year
  Sex: Male

DRUGS (2)
  1. REVLIMID [Suspect]
     Active Substance: LENALIDOMIDE
     Indication: Plasma cell myeloma
  2. REVLIMID [Suspect]
     Active Substance: LENALIDOMIDE
     Dates: start: 20250911

REACTIONS (9)
  - Migraine [Not Recovered/Not Resolved]
  - Insomnia [Unknown]
  - Product use issue [Unknown]
  - Neuropathy peripheral [Unknown]
  - Back pain [Unknown]
  - Pain in extremity [Unknown]
  - Vision blurred [Unknown]
  - Jaw disorder [Unknown]
  - Dental caries [Unknown]
